FAERS Safety Report 9293321 (Version 1)
Quarter: 2013Q2

REPORT INFORMATION
  Report Type: Spontaneous
  Country: US (occurrence: US)
  Receive Date: 20130516
  Receipt Date: 20130516
  Transmission Date: 20140414
  Serious: No
  Sender: FDA-Public Use
  Company Number: US-ASTRAZENECA-2013SE30999

PATIENT
  Sex: Female

DRUGS (2)
  1. NEXIUM [Suspect]
     Indication: GASTRIC DISORDER
     Route: 048
  2. OMEPRAZOLE [Suspect]
     Indication: GASTRIC DISORDER
     Dosage: BID
     Route: 048

REACTIONS (3)
  - Flatulence [Unknown]
  - Intentional drug misuse [Unknown]
  - Drug ineffective [Unknown]
